FAERS Safety Report 9816958 (Version 1)
Quarter: 2014Q1

REPORT INFORMATION
  Report Type: Spontaneous
  Country: US (occurrence: US)
  Receive Date: 20140114
  Receipt Date: 20140114
  Transmission Date: 20141002
  Serious: Yes (Hospitalization)
  Sender: FDA-Public Use
  Company Number: US-GLAXOSMITHKLINE-A1056004A

PATIENT
  Age: 50 Year
  Sex: Male

DRUGS (8)
  1. ADVAIR [Suspect]
     Indication: ASTHMA
     Dosage: 1PUFF ALTERNATE DAYS
     Route: 055
  2. BENZTROPINE [Concomitant]
  3. PROZAC [Concomitant]
  4. HALDOL [Concomitant]
  5. ATARAX [Concomitant]
  6. LISINOPRIL [Concomitant]
  7. OMEPRAZOLE [Concomitant]
  8. TIMOLOL [Concomitant]

REACTIONS (6)
  - Anxiety [Unknown]
  - Depression [Unknown]
  - Panic disorder [Unknown]
  - Hypertension [Unknown]
  - Off label use [Unknown]
  - Drug administration error [Unknown]
